FAERS Safety Report 4377322-6 (Version None)
Quarter: 2004Q2

REPORT INFORMATION
  Report Type: 
  Country: None (occurrence: None)
  Receive Date: 20040609
  Receipt Date: 20040414
  Transmission Date: 20050107
  Serious: No
  Sender: FDA-Public Use
  Company Number: 2004209447US

PATIENT
  Age: 80 Year
  Sex: Female

DRUGS (1)
  1. BEXTRA [Suspect]
     Indication: ARTHRITIS
     Dosage: 20 MG, QD
     Dates: start: 20030101

REACTIONS (2)
  - DRUG INEFFECTIVE [None]
  - FALL [None]
